FAERS Safety Report 7802332-3 (Version None)
Quarter: 2011Q4

REPORT INFORMATION
  Report Type: 
  Country: None (occurrence: None)
  Receive Date: 20111007
  Receipt Date: 20110928
  Transmission Date: 20120403
  Serious: Yes (Other)
  Sender: FDA-Public Use
  Company Number: FR-PFIZER INC-FR-WYE-G06609310

PATIENT
  Sex: Female

DRUGS (9)
  1. MIRTAZAPINE [Suspect]
     Dosage: 2 TABLETS TOTAL DAILY
     Route: 048
     Dates: start: 20100723, end: 20100813
  2. SERTRALINE [Concomitant]
     Route: 048
  3. IMOVANE [Concomitant]
     Route: 048
  4. LEXOMIL [Concomitant]
     Route: 048
  5. TRAZODONE HCL [Suspect]
     Dosage: 375 MG TOTAL DAILY
     Route: 048
     Dates: start: 20100723, end: 20100813
  6. MIRTAZAPINE [Suspect]
     Dosage: 2 TABLETS TOTAL DAILY
     Route: 048
     Dates: start: 20100818
  7. VALIUM [Concomitant]
     Dosage: UNK
     Route: 065
     Dates: start: 20100723
  8. TRAZODONE HCL [Suspect]
     Dosage: 225 MG TOTAL DAILY
     Route: 048
     Dates: start: 20100818
  9. HYDROXYZINE [Suspect]
     Dosage: 300 MG TOTAL DAILY
     Route: 048
     Dates: start: 20100723, end: 20100813

REACTIONS (2)
  - APRAXIA [None]
  - DYSARTHRIA [None]
